FAERS Safety Report 5103826-4 (Version None)
Quarter: 2006Q3

REPORT INFORMATION
  Report Type: 
  Country: None (occurrence: None)
  Receive Date: 20060913
  Receipt Date: 20060907
  Transmission Date: 20061208
  Serious: Yes (Hospitalization)
  Sender: FDA-Public Use
  Company Number: PHHO2006FR14964

PATIENT
  Age: 53 Year
  Sex: Female

DRUGS (9)
  1. CYCLOSPORINE [Suspect]
     Indication: RENAL TRANSPLANT
     Dosage: 125 MG, BID
     Route: 048
     Dates: start: 20050709
  2. ZENAPAX [Suspect]
     Indication: RENAL TRANSPLANT
     Dosage: 2 MG/KG, ONCE/SINGLE
     Route: 042
     Dates: start: 20050709, end: 20050709
  3. ZENAPAX [Suspect]
     Dosage: 1 MG/KG, ONCE/SINGLE
     Route: 042
     Dates: start: 20050723, end: 20050723
  4. MYCOPHENOLATE MOFETIL [Suspect]
     Indication: RENAL TRANSPLANT
     Dosage: 1 G, BID
     Route: 048
     Dates: start: 20050709
  5. CORTICOSTEROIDS [Suspect]
     Indication: RENAL TRANSPLANT
     Dosage: 10 MG, QD
     Route: 048
     Dates: start: 20050709
  6. BACTRIM [Concomitant]
  7. OGAST [Concomitant]
  8. PHOSPHONEUROS [Concomitant]
  9. MAG 2 [Concomitant]

REACTIONS (2)
  - DYSURIA [None]
  - URINARY TRACT OPERATION [None]
